FAERS Safety Report 5365512-5 (Version None)
Quarter: 2007Q2

REPORT INFORMATION
  Report Type: 
  Country: None (occurrence: None)
  Receive Date: 20070621
  Receipt Date: 20070614
  Transmission Date: 20071010
  Serious: Yes (Hospitalization)
  Sender: FDA-Public Use
  Company Number: A0653798A

PATIENT
  Age: 60 Year
  Sex: Male

DRUGS (8)
  1. AVANDIA [Suspect]
     Dosage: 4MG TWICE PER DAY
     Route: 048
     Dates: start: 20070328
  2. AVAPRO [Concomitant]
  3. AMARYL [Concomitant]
  4. ANDROGEL [Concomitant]
  5. METFORMIN HCL [Concomitant]
     Dosage: 1000MG TWICE PER DAY
  6. PLAVIX [Concomitant]
  7. TOPROL-XL [Concomitant]
  8. CRESTOR [Concomitant]

REACTIONS (11)
  - ADVERSE EVENT [None]
  - CARDIAC FAILURE CONGESTIVE [None]
  - DYSPNOEA [None]
  - DYSPNOEA EXERTIONAL [None]
  - GENERALISED OEDEMA [None]
  - OEDEMA DUE TO HEPATIC DISEASE [None]
  - ORTHOPNOEA [None]
  - PLEURAL EFFUSION [None]
  - SCROTAL SWELLING [None]
  - SKIN OEDEMA [None]
  - WEIGHT DECREASED [None]
